FAERS Safety Report 18959333 (Version 1)
Quarter: 2021Q1

REPORT INFORMATION
  Report Type: Spontaneous
  Country: TW (occurrence: TW)
  Receive Date: 20210302
  Receipt Date: 20210302
  Transmission Date: 20210420
  Serious: Yes (Hospitalization, Other)
  Sender: FDA-Public Use
  Company Number: NVSC2021TW045978

PATIENT
  Age: 49 Year
  Sex: Female
  Weight: 60 kg

DRUGS (1)
  1. TEGRETOL XR [Suspect]
     Active Substance: CARBAMAZEPINE
     Indication: TRIGEMINAL NEURALGIA
     Dosage: UNK, BID
     Route: 048
     Dates: start: 20200430

REACTIONS (11)
  - Conjunctival erosion [Unknown]
  - Platelet count decreased [Unknown]
  - Oropharyngeal pain [Unknown]
  - Conjunctivitis [Unknown]
  - Rash [Unknown]
  - Asthenia [Unknown]
  - Oral disorder [Unknown]
  - Dysuria [Unknown]
  - Stevens-Johnson syndrome [Recovering/Resolving]
  - Pyuria [Unknown]
  - Pyrexia [Unknown]
